FAERS Safety Report 4469219-8 (Version None)
Quarter: 2004Q4

REPORT INFORMATION
  Report Type: 
  Country: None (occurrence: None)
  Receive Date: 20041008
  Receipt Date: 20041005
  Transmission Date: 20050328
  Serious: Yes (Death, Life-Threatening, Hospitalization)
  Sender: FDA-Public Use
  Company Number: SE-BRISTOL-MYERS SQUIBB COMPANY-12722096

PATIENT
  Age: 66 Year
  Sex: Female
  Weight: 122 kg

DRUGS (2)
  1. TAXOL [Suspect]
     Indication: BREAST CANCER METASTATIC
     Route: 042
     Dates: start: 20040915, end: 20040915
  2. GEMCITABINE [Suspect]
     Indication: BREAST CANCER METASTATIC
     Route: 042
     Dates: start: 20040915, end: 20040915

REACTIONS (5)
  - DEATH [None]
  - FATIGUE [None]
  - HYPERCAPNIA [None]
  - NAUSEA [None]
  - OXYGEN SATURATION DECREASED [None]
